FAERS Safety Report 16215941 (Version 1)
Quarter: 2019Q2

REPORT INFORMATION
  Report Type: Spontaneous
  Country: TR (occurrence: TR)
  Receive Date: 20190419
  Receipt Date: 20190419
  Transmission Date: 20190711
  Serious: Yes (Hospitalization, Other)
  Sender: FDA-Public Use
  Company Number: TR-ASTELLAS-2019US017134

PATIENT
  Weight: 3.4 kg

DRUGS (1)
  1. TACROLIMUS SYSTEMIC [Suspect]
     Active Substance: TACROLIMUS
     Indication: FOETAL EXPOSURE DURING PREGNANCY
     Dosage: UNK UNK, UNKNOWN FREQ.
     Route: 064

REACTIONS (1)
  - Premature baby [Unknown]
